FAERS Safety Report 10777504 (Version 1)
Quarter: 2015Q1

REPORT INFORMATION
  Report Type: Spontaneous
  Country: BR (occurrence: BR)
  Receive Date: 20150209
  Receipt Date: 20150209
  Transmission Date: 20150721
  Serious: Yes (Death)
  Sender: FDA-Public Use
  Company Number: BR-PFIZER INC-2015046928

PATIENT
  Sex: Male

DRUGS (1)
  1. SUTENT [Suspect]
     Active Substance: SUNITINIB MALATE
     Indication: RENAL CELL CARCINOMA
     Dosage: 37.50 MG, CYCLE 4X2
     Route: 048

REACTIONS (4)
  - Multi-organ failure [Fatal]
  - Dyspnoea [Unknown]
  - Renal cell carcinoma [Fatal]
  - Disease progression [Fatal]
